FAERS Safety Report 17437457 (Version 1)
Quarter: 2020Q1

REPORT INFORMATION
  Report Type: Spontaneous
  Country: US (occurrence: US)
  Receive Date: 20200219
  Receipt Date: 20200219
  Transmission Date: 20200409
  Serious: No
  Sender: FDA-Public Use
  Company Number: US-TEVA-2020-US-1186498

PATIENT
  Sex: Male

DRUGS (2)
  1. BACLOFEN. [Suspect]
     Active Substance: BACLOFEN
     Indication: NECK PAIN
     Dosage: 1-2 TABLETS SEVERAL TIMES A WEEK AS NEEDED
     Route: 065
  2. BACLOFEN. [Suspect]
     Active Substance: BACLOFEN
     Indication: BACK PAIN

REACTIONS (5)
  - Nightmare [Unknown]
  - Dizziness [Unknown]
  - Feeling abnormal [Unknown]
  - Drug intolerance [Unknown]
  - Product quality issue [Unknown]
